FAERS Safety Report 8761408 (Version 1)
Quarter: 2012Q4

REPORT INFORMATION
  Report Type: 
  Country: DE (occurrence: DE)
  Receive Date: 20120829
  Receipt Date: 20120829
  Transmission Date: 20130627
  Serious: Yes (Hospitalization)
  Sender: FDA-Public Use
  Company Number: DE-PFIZER INC-2012207472

PATIENT
  Sex: Female
  Weight: 142 kg

DRUGS (5)
  1. GENOTROPIN [Suspect]
     Dosage: 0.3 mg, 7/wk
     Route: 058
     Dates: start: 20050406
  2. PHENPROCOUMON [Concomitant]
     Indication: ANTICOAGULANT THERAPY
     Dosage: UNK
     Dates: start: 19790701
  3. METOPROLOL [Concomitant]
     Indication: ESSENTIAL HYPERTENSION
     Dosage: UNK
     Dates: start: 20000701
  4. LISINOPRIL [Concomitant]
     Indication: ESSENTIAL HYPERTENSION
     Dosage: UNK
     Dates: start: 20000701
  5. JODTHYROX [Concomitant]
     Indication: GOITRE
     Dosage: UNK
     Dates: start: 20000701

REACTIONS (1)
  - Gastrointestinal disorder [Unknown]
